FAERS Safety Report 25854213 (Version 1)
Quarter: 2025Q3

REPORT INFORMATION
  Report Type: Spontaneous
  Country: JP (occurrence: JP)
  Receive Date: 20250926
  Receipt Date: 20250926
  Transmission Date: 20251020
  Serious: Yes (Hospitalization, Other)
  Sender: BRISTOL-MYERS SQUIBB COMPANY
  Company Number: JP-ONO-2025JP016870

PATIENT
  Age: 80 Year
  Sex: Male
  Weight: 39 kg

DRUGS (8)
  1. OPDIVO [Suspect]
     Active Substance: NIVOLUMAB
     Indication: Gastric cancer
     Dates: start: 20240816, end: 20241015
  2. OPDIVO [Suspect]
     Active Substance: NIVOLUMAB
     Dates: start: 20241119, end: 20241119
  3. LEVOLEUCOVORIN CALCIUM [Suspect]
     Active Substance: LEVOLEUCOVORIN CALCIUM
     Indication: Gastric cancer
     Dates: start: 20240816, end: 20241015
  4. LEVOLEUCOVORIN CALCIUM [Suspect]
     Active Substance: LEVOLEUCOVORIN CALCIUM
     Dates: start: 20241119, end: 20241119
  5. OXALIPLATIN [Suspect]
     Active Substance: OXALIPLATIN
     Indication: Gastric cancer
     Dates: start: 20240816, end: 20241015
  6. OXALIPLATIN [Suspect]
     Active Substance: OXALIPLATIN
     Dates: start: 20241119, end: 20241119
  7. FLUOROURACIL [Suspect]
     Active Substance: FLUOROURACIL
     Indication: Gastric cancer
     Dates: start: 20240816, end: 20241015
  8. FLUOROURACIL [Suspect]
     Active Substance: FLUOROURACIL
     Dates: start: 20241119, end: 20241119

REACTIONS (4)
  - Fungaemia [Unknown]
  - Endophthalmitis [Unknown]
  - Drug-induced liver injury [Recovered/Resolved]
  - Neutrophil count decreased [Unknown]

NARRATIVE: CASE EVENT DATE: 20241015
